FAERS Safety Report 8784400 (Version 1)
Quarter: 2012Q4

REPORT INFORMATION
  Report Type: Spontaneous
  Country: US (occurrence: None)
  Receive Date: 20120830
  Receipt Date: 20120830
  Transmission Date: 20130627
  Serious: Yes (Other)
  Sender: FDA-Public Use
  Company Number: KAD201208-000418

PATIENT
  Sex: Female

DRUGS (2)
  1. RIBAVIRIN [Suspect]
     Dosage: 2 TIMES EVERY DAY
     Dates: end: 201208
  2. PEGASYS [Suspect]
     Dates: end: 201208

REACTIONS (3)
  - Pregnancy [None]
  - Exposure during pregnancy [None]
  - Vaginal haemorrhage [None]
